FAERS Safety Report 4902585-5 (Version None)
Quarter: 2006Q1

REPORT INFORMATION
  Report Type: 
  Country: None (occurrence: None)
  Receive Date: 20060113
  Receipt Date: 20050517
  Transmission Date: 20060701
  Serious: Yes (Other)
  Sender: FDA-Public Use
  Company Number: 2005076504

PATIENT
  Age: 49 Year
  Sex: Male

DRUGS (1)
  1. DIFLUCAN [Suspect]
     Indication: MENINGITIS CRYPTOCOCCAL
     Dates: start: 20000101

REACTIONS (1)
  - DERMATITIS EXFOLIATIVE [None]
